FAERS Safety Report 17037321 (Version 5)
Quarter: 2020Q1

REPORT INFORMATION
  Report Type: Spontaneous
  Country: US (occurrence: US)
  Receive Date: 20191115
  Receipt Date: 20200212
  Transmission Date: 20200409
  Serious: Yes (Hospitalization, Other)
  Sender: FDA-Public Use
  Company Number: US-PFIZER INC-2019492097

PATIENT
  Age: 61 Year
  Sex: Female
  Weight: 49 kg

DRUGS (36)
  1. ULTRAM [Concomitant]
     Active Substance: TRAMADOL HYDROCHLORIDE
     Indication: PAIN
     Dosage: 50 MG, AS NEEDED (EVERY 6 (SIX) HOURS AS NEEDED)
     Route: 048
  2. NORCO [Concomitant]
     Active Substance: ACETAMINOPHEN\HYDROCODONE BITARTRATE
     Dosage: 1 DF, UNK (HYDROCODONE BITARTRATE: 7.5 MG, PARACETAMOL:325 MG)
     Dates: start: 20191112
  3. MONODOX [Concomitant]
     Active Substance: DOXYCYCLINE
     Dosage: 100 MG, 1X/DAY
     Route: 048
  4. MACROBID [Concomitant]
     Active Substance: NITROFURANTOIN\NITROFURANTOIN MONOHYDRATE
     Dosage: 100 MG, 1X/DAY
     Route: 048
  5. ZOLOFT [Concomitant]
     Active Substance: SERTRALINE HYDROCHLORIDE
     Dosage: 100 MG, 1X/DAY (AT BEDTIME)
     Route: 048
  6. ZOFRAN [Concomitant]
     Active Substance: ONDANSETRON HYDROCHLORIDE
     Dosage: 4 MG, UNK
     Route: 042
     Dates: start: 20191112
  7. CYMBALTA [Concomitant]
     Active Substance: DULOXETINE HYDROCHLORIDE
     Dosage: 30 MG, 1X/DAY
     Route: 048
  8. PROTONIX [Concomitant]
     Active Substance: PANTOPRAZOLE SODIUM
     Dosage: 40 MG, DAILY
     Route: 048
  9. ULTRAM [Concomitant]
     Active Substance: TRAMADOL HYDROCHLORIDE
     Dosage: UNK, 4X/DAY (1 TO 2 TABLETS PO QID (FOUR TIMES A DAY)
     Route: 048
  10. SODIUM CHLORIDE 0.9% [Concomitant]
     Active Substance: SODIUM CHLORIDE
     Dosage: 1000 ML, UNK
     Route: 042
     Dates: start: 20191112
  11. SODIUM CHLORIDE 0.9% [Concomitant]
     Active Substance: SODIUM CHLORIDE
     Dosage: 1000 ML, UNK
     Route: 042
     Dates: start: 20191112
  12. TYLENOL [Concomitant]
     Active Substance: ACETAMINOPHEN
     Indication: HEADACHE
     Dosage: 500 MG, AS NEEDED (EVERY 6 (SIX) HOURS AS NEEDED)
     Route: 048
  13. VENTOLIN HFA [Concomitant]
     Active Substance: ALBUTEROL SULFATE
     Indication: DYSPNOEA
     Dosage: 2 DF, AS NEEDED (90 MCG/ ACTUATION AEROSOL INHALER) (2 PUFFS Q (EVERY) 4 HR (AS NEEDED))
     Route: 055
  14. ZOFRAN [Concomitant]
     Active Substance: ONDANSETRON HYDROCHLORIDE
     Indication: NAUSEA
     Dosage: 4 MG, AS NEEDED (1 TABLET (4 MG TOTAL) IN MOUTH EVERY 12 (TWELVE) HOURS)
     Route: 048
  15. AMBIEN [Concomitant]
     Active Substance: ZOLPIDEM TARTRATE
     Indication: INSOMNIA
     Dosage: 10 MG, AS NEEDED (TAKE 10 MG BY MOUTH NIGHTLY AS NEEDED)
     Route: 048
  16. PREDNISONE. [Concomitant]
     Active Substance: PREDNISONE
     Dosage: 7.5 MG, AS NEEDED (5 MG TABLET, 1. 5 TAB PO QD (ONCE DAILY) (7.5 MG TOTAL) AS NEEDED)
     Route: 048
  17. PROVENTIL HFA [Concomitant]
     Active Substance: ALBUTEROL SULFATE
     Indication: WHEEZING
     Dosage: 2 DF, AS NEEDED (2 PUFFS INTO THE LUNGS EVERY 6 (SIX) HOURS AS NEEDED)
     Route: 055
  18. LYRICA [Suspect]
     Active Substance: PREGABALIN
     Indication: PAIN
     Dosage: 100 MG, 3X/DAY
     Route: 048
  19. LYRICA [Suspect]
     Active Substance: PREGABALIN
     Indication: FIBROMYALGIA
     Dosage: 100 MG, UNK
     Route: 048
     Dates: start: 20191112
  20. ALBUTEROL SULFATE. [Concomitant]
     Active Substance: ALBUTEROL SULFATE
     Indication: WHEEZING
     Dosage: 90 UG, UNK
  21. ZESTRIL [Concomitant]
     Active Substance: LISINOPRIL
     Dosage: 20 MG, 1X/DAY
     Route: 048
     Dates: start: 20180613
  22. ANTIVERT [Concomitant]
     Active Substance: MECLIZINE HYDROCHLORIDE
     Indication: DIZZINESS
     Dosage: 25 MG, AS NEEDED
     Route: 048
  23. PERCOCET [Concomitant]
     Active Substance: ACETAMINOPHEN\OXYCODONE HYDROCHLORIDE
     Indication: PAIN
     Dosage: UNK, AS NEEDED (OXYCODONE HYDROCHLORIDE: 5 MG, PARACETAMOL: 325 MG) (TAKE 1-2 TABLETS BY MOUTH EVER)
     Dates: start: 20190314
  24. PROTONIX [Concomitant]
     Active Substance: PANTOPRAZOLE SODIUM
     Dosage: 40 MG, AS NEEDED
     Route: 048
  25. DELTASONE [Concomitant]
     Active Substance: PREDNISONE
     Dosage: 5 MG, 1X/DAY (AT BEDTIME)
     Route: 048
  26. SUBLIMAZE [Concomitant]
     Active Substance: FENTANYL CITRATE
     Dosage: 50 UG, UNK
     Route: 042
     Dates: start: 20191112
  27. ISOVUE 370 [Concomitant]
     Active Substance: IOPAMIDOL
     Dosage: 100 ML, UNK
     Route: 042
     Dates: start: 20191112
  28. ACETAMINOPHEN;HYDROCODONE [Concomitant]
     Active Substance: ACETAMINOPHEN\HYDROCODONE
     Indication: PAIN
     Dosage: 1 DF, 2X/DAY [HYDROCODONE: 7.5 MG, PARACETAMOL: 325 MG]
     Route: 048
  29. TYLENOL [Concomitant]
     Active Substance: ACETAMINOPHEN
     Dosage: 325 MG, UNK
     Route: 048
     Dates: start: 20191112
  30. HYDROCORTISONE. [Concomitant]
     Active Substance: HYDROCORTISONE
     Dosage: UNK, 3X/DAY
     Route: 061
     Dates: start: 20181120
  31. MECLIZINE [Concomitant]
     Active Substance: MECLIZINE HYDROCHLORIDE
     Indication: VERTIGO
     Dosage: 25 MG, AS NEEDED (1 PO BID (TWICE DAILY) AS NEEDED)
     Route: 048
  32. PRINIVIL [Concomitant]
     Active Substance: LISINOPRIL
     Dosage: 20 MG, 1X/DAY
     Route: 048
     Dates: start: 20180613
  33. ZOLPIDEM [Concomitant]
     Active Substance: ZOLPIDEM TARTRATE
     Indication: INSOMNIA
     Dosage: 6.25 MG, 1X/DAY (AT BEDTIME)
     Route: 048
  34. VENTOLIN HFA [Concomitant]
     Active Substance: ALBUTEROL SULFATE
     Indication: WHEEZING
     Dosage: 2 DF, AS NEEDED (EVERY 6 (SIX) HOURS AS NEEDED) (90 MCG)
     Route: 055
  35. LISINOPRIL. [Concomitant]
     Active Substance: LISINOPRIL
     Indication: BLOOD PRESSURE ABNORMAL
     Dosage: 10 MG, DAILY (1 PO QD (ONCE DAILY))
     Route: 048
  36. PROAIR HFA [Concomitant]
     Active Substance: ALBUTEROL SULFATE
     Dosage: 2 DF, AS NEEDED (INHALER INHALE 2 PUFFS INTO THE LUNGS EVERY 6 (SIX) HOURS AS NEEDED )
     Route: 055

REACTIONS (27)
  - Headache [Unknown]
  - Back pain [Unknown]
  - Specific gravity urine decreased [Unknown]
  - Bile duct stone [Unknown]
  - Dizziness [Unknown]
  - Abdominal pain [Unknown]
  - Cough [Unknown]
  - Oliguria [Unknown]
  - Blood sodium decreased [Unknown]
  - Dehydration [Unknown]
  - Nausea [Unknown]
  - Diarrhoea [Unknown]
  - Platelet count increased [Unknown]
  - Blood glucose increased [Unknown]
  - Blood albumin decreased [Unknown]
  - Malaise [Unknown]
  - Dyspnoea [Unknown]
  - Vomiting [Unknown]
  - Fatigue [Unknown]
  - Neutrophil count increased [Unknown]
  - Anaemia [Unknown]
  - Cachexia [Unknown]
  - Withdrawal syndrome [Unknown]
  - Feeding disorder [Unknown]
  - Weight decreased [Unknown]
  - Biliary dilatation [Unknown]
  - Abdominal discomfort [Recovered/Resolved]

NARRATIVE: CASE EVENT DATE: 20191112
